FAERS Safety Report 14934799 (Version 1)
Quarter: 2018Q2

REPORT INFORMATION
  Report Type: Spontaneous
  Country: US (occurrence: US)
  Receive Date: 20180524
  Receipt Date: 20180524
  Transmission Date: 20180711
  Serious: Yes (Death)
  Sender: FDA-Public Use
  Company Number: US-EXELIXIS-CABO-18014118

PATIENT
  Sex: Female

DRUGS (1)
  1. CABOMETYX [Suspect]
     Active Substance: CABOZANTINIB S-MALATE
     Indication: FEMALE REPRODUCTIVE NEOPLASM
     Dosage: 60 MG, QD
     Route: 048

REACTIONS (3)
  - Embolism [Fatal]
  - Off label use [Unknown]
  - Female reproductive neoplasm [Fatal]
